FAERS Safety Report 6005530-7 (Version None)
Quarter: 2008Q4

REPORT INFORMATION
  Report Type: 
  Country: None (occurrence: None)
  Receive Date: 20081216
  Receipt Date: 20081216
  Transmission Date: 20090506
  Serious: Yes (Other)
  Sender: FDA-Public Use
  Company Number: None

PATIENT
  Sex: Male
  Weight: 77.1115 kg

DRUGS (1)
  1. LAMICTAL [Suspect]
     Indication: NEUROPATHY PERIPHERAL
     Dosage: ONCE A DAY PO
     Route: 048
     Dates: start: 20040301, end: 20040501

REACTIONS (2)
  - ABNORMAL BEHAVIOUR [None]
  - PERSONALITY CHANGE [None]
